FAERS Safety Report 4401212-3 (Version None)
Quarter: 2004Q3

REPORT INFORMATION
  Report Type: 
  Country: None (occurrence: None)
  Receive Date: 20040907
  Receipt Date: 20031223
  Transmission Date: 20050211
  Serious: No
  Sender: FDA-Public Use
  Company Number: US-BRISTOL-MYERS SQUIBB COMPANY-12464202

PATIENT
  Age: 82 Year
  Sex: Female
  Weight: 63 kg

DRUGS (13)
  1. COUMADIN [Suspect]
     Indication: CARDIAC FAILURE
     Dosage: 2MG EVERY DAY FOR 6 DAYS + 1MG THE SEVENTH DAY.
     Route: 048
  2. COUMADIN [Suspect]
     Indication: NEUROPATHY PERIPHERAL
     Dosage: 2MG EVERY DAY FOR 6 DAYS + 1MG THE SEVENTH DAY.
     Route: 048
  3. FUROSEMIDE [Concomitant]
  4. PREVACID [Concomitant]
  5. ZESTRIL [Concomitant]
  6. NEURONTIN [Concomitant]
  7. PROPOXYPHENE [Concomitant]
  8. K-DUR 10 [Concomitant]
  9. LIPITOR [Concomitant]
  10. PAMELOR [Concomitant]
  11. ALPRAZOLAM [Concomitant]
  12. LEVOXYL [Concomitant]
  13. OS-CAL [Concomitant]

REACTIONS (2)
  - INTERNATIONAL NORMALISED RATIO DECREASED [None]
  - PROTHROMBIN TIME PROLONGED [None]
